FAERS Safety Report 9805971 (Version 7)
Quarter: 2014Q2

REPORT INFORMATION
  Report Type: Report from Study
  Country: US (occurrence: US)
  Receive Date: 20140109
  Receipt Date: 20140402
  Transmission Date: 20141212
  Serious: Yes (Hospitalization)
  Sender: FDA-Public Use
  Company Number: US-PFIZER INC-2013361343

PATIENT
  Age: 55 Year
  Sex: Male
  Weight: 79.8 kg

DRUGS (5)
  1. TOFACITINIB CITRATE [Suspect]
     Indication: RHEUMATOID ARTHRITIS
     Dosage: 10 MG, BID
     Route: 048
     Dates: start: 20120104, end: 20131214
  2. ADVIL [Suspect]
     Indication: RHEUMATOID ARTHRITIS
     Dosage: 2 TABS, PRN
     Route: 048
     Dates: start: 1976, end: 20131213
  3. DICLOFENAC [Suspect]
     Indication: RHEUMATOID ARTHRITIS
     Dosage: 75 MG, 2X/DAY
     Route: 048
     Dates: start: 200810, end: 20131213
  4. METHOTREXATE [Concomitant]
     Indication: RHEUMATOID ARTHRITIS
     Dosage: UNK
     Dates: start: 20050818, end: 20131213
  5. FOLIC ACID [Concomitant]
     Indication: RHEUMATOID ARTHRITIS
     Dosage: UNK
     Dates: start: 20130818, end: 20131213

REACTIONS (2)
  - Colonic abscess [Recovered/Resolved]
  - Diverticulitis [Recovered/Resolved]
